FAERS Safety Report 7952694-1 (Version None)
Quarter: 2011Q4

REPORT INFORMATION
  Report Type: 
  Country: None (occurrence: None)
  Receive Date: 20111201
  Receipt Date: 20111125
  Transmission Date: 20120403
  Serious: Yes (Hospitalization)
  Sender: FDA-Public Use
  Company Number: JP-EISAI INC-E2090-01832-SPO-JP

PATIENT
  Sex: Female
  Weight: 16 kg

DRUGS (8)
  1. TULOBUTEROL TAPE [Concomitant]
  2. ZONISAMIDE [Suspect]
     Indication: EPILEPSY
     Route: 048
     Dates: start: 20020201, end: 20090727
  3. MUCODYNE [Concomitant]
  4. CLEMASTINE FUMARATE [Concomitant]
  5. VALERIN [Concomitant]
     Indication: AICARDI'S SYNDROME
     Dates: start: 20020201
  6. RICAMYCIN [Concomitant]
  7. PYDOXAL [Concomitant]
  8. INCREMIN [Concomitant]

REACTIONS (1)
  - NEPHROLITHIASIS [None]
